FAERS Safety Report 5089263-X (Version None)
Quarter: 2006Q3

REPORT INFORMATION
  Report Type: 
  Country: None (occurrence: None)
  Receive Date: 20060727
  Receipt Date: 20060605
  Transmission Date: 20061208
  Serious: Yes (Other)
  Sender: FDA-Public Use
  Company Number: 2006071640

PATIENT
  Age: 59 Year
  Sex: Male

DRUGS (10)
  1. LYRICA [Suspect]
     Indication: NEURALGIA
     Dosage: 300 MG (50 MG, 3 IN 1 D), ORAL
     Route: 048
     Dates: start: 20060101
  2. METFORMIN HCL [Concomitant]
  3. GLIPIZIDE [Concomitant]
  4. LIPITOR [Concomitant]
  5. LORAZEPAM [Concomitant]
  6. ASPIRIN [Concomitant]
  7. PREVACID [Concomitant]
  8. LOSARTAN POTASSIUM [Concomitant]
  9. DOXAZOSIN (DOXAZOSIN) [Concomitant]
  10. ZOLOFT [Concomitant]

REACTIONS (2)
  - ERECTILE DYSFUNCTION [None]
  - SEXUAL DYSFUNCTION [None]
